FAERS Safety Report 5509612-5 (Version None)
Quarter: 2007Q4

REPORT INFORMATION
  Report Type: 
  Country: None (occurrence: None)
  Receive Date: 20071107
  Receipt Date: 20071107
  Transmission Date: 20080405
  Serious: Yes (Life-Threatening)
  Sender: FDA-Public Use
  Company Number: None

PATIENT
  Age: 70 Year
  Sex: Male
  Weight: 73.8 kg

DRUGS (1)
  1. GENGRAF [Suspect]
     Indication: HEART TRANSPLANT REJECTION
     Dosage: 75 MG TWICE DAILY PO MANY YEARS
     Route: 048

REACTIONS (2)
  - DRUG LEVEL BELOW THERAPEUTIC [None]
  - WRONG TECHNIQUE IN DRUG USAGE PROCESS [None]
